FAERS Safety Report 6214989-1 (Version None)
Quarter: 2009Q2

REPORT INFORMATION
  Report Type: 
  Country: None (occurrence: None)
  Receive Date: 20090604
  Receipt Date: 20080506
  Transmission Date: 20091009
  Serious: No
  Sender: FDA-Public Use
  Company Number: US-ASTRAZENECA-2008UW09293

PATIENT
  Age: 49 Year
  Sex: Male
  Weight: 99.8 kg

DRUGS (4)
  1. PRILOSEC [Suspect]
     Indication: GASTROOESOPHAGEAL REFLUX DISEASE
     Route: 048
  2. DURAGESIC-100 [Concomitant]
  3. OXYCODONE [Concomitant]
  4. OXYCODONE HCL [Concomitant]

REACTIONS (4)
  - ABDOMINAL PAIN [None]
  - NAUSEA [None]
  - PALLOR [None]
  - VOMITING [None]
